FAERS Safety Report 5848373-7 (Version None)
Quarter: 2008Q3

REPORT INFORMATION
  Report Type: 
  Country: None (occurrence: None)
  Receive Date: 20080818
  Receipt Date: 20080812
  Transmission Date: 20090109
  Serious: Yes (Hospitalization)
  Sender: FDA-Public Use
  Company Number: EE-AVENTIS-200817207GDDC

PATIENT
  Age: 36 Year
  Sex: Female
  Weight: 86 kg

DRUGS (3)
  1. APIDRA [Suspect]
     Route: 058
     Dates: start: 20080219, end: 20080313
  2. ENOXAPARIN SODIUM [Suspect]
     Route: 058
     Dates: start: 20080218, end: 20080313
  3. TRANDATE [Suspect]
     Indication: HYPERTENSION
     Route: 048
     Dates: start: 20080215, end: 20080313

REACTIONS (2)
  - DRUG EXPOSURE DURING PREGNANCY [None]
  - HYPERTENSION [None]
